FAERS Safety Report 7738244-3 (Version None)
Quarter: 2011Q3

REPORT INFORMATION
  Report Type: 
  Country: None (occurrence: None)
  Receive Date: 20110908
  Receipt Date: 20110905
  Transmission Date: 20111222
  Serious: Yes (Hospitalization)
  Sender: FDA-Public Use
  Company Number: FR-ABBOTT-11P-056-0733639-00

PATIENT
  Sex: Female
  Weight: 69 kg

DRUGS (2)
  1. HUMIRA [Suspect]
     Indication: CROHN'S DISEASE
     Route: 058
     Dates: start: 20101011, end: 20101201
  2. HUMIRA [Suspect]
     Indication: COLITIS

REACTIONS (6)
  - ARTHRALGIA [None]
  - VISUAL ACUITY REDUCED [None]
  - BALANCE DISORDER [None]
  - GAIT DISTURBANCE [None]
  - DYSAESTHESIA [None]
  - MYALGIA [None]
